FAERS Safety Report 7971521-X (Version None)
Quarter: 2011Q4

REPORT INFORMATION
  Report Type: 
  Country: None (occurrence: None)
  Receive Date: 20111212
  Receipt Date: 20111128
  Transmission Date: 20120403
  Serious: Yes (Other)
  Sender: FDA-Public Use
  Company Number: GB-ELI_LILLY_AND_COMPANY-GB201110000527

PATIENT
  Sex: Female

DRUGS (9)
  1. AMITRIPTYLINE HCL [Concomitant]
  2. OMEPRAZOLE [Concomitant]
  3. OXYCODONE HCL [Concomitant]
  4. ACETAMINOPHEN [Suspect]
  5. CYMBALTA [Suspect]
     Indication: DEPRESSION
     Dosage: UNK, UNKNOWN
     Route: 048
  6. MORPHINE [Concomitant]
  7. DIAZEPAM [Concomitant]
  8. CYMBALTA [Suspect]
     Dosage: UNK, UNKNOWN
     Dates: start: 20111003
  9. MIRTAZAPINE [Concomitant]

REACTIONS (2)
  - WRONG TECHNIQUE IN DRUG USAGE PROCESS [None]
  - DYSPHAGIA [None]
